FAERS Safety Report 4503102-4 (Version None)
Quarter: 2004Q4

REPORT INFORMATION
  Report Type: 
  Country: None (occurrence: None)
  Receive Date: 20041117
  Receipt Date: 20041004
  Transmission Date: 20050328
  Serious: Yes (Life-Threatening)
  Sender: FDA-Public Use
  Company Number: DE-ROCHE-382237

PATIENT
  Age: 30 Year
  Sex: Male
  Weight: 97.3 kg

DRUGS (4)
  1. VESANOID [Suspect]
     Indication: HEPATITIS C
     Route: 048
     Dates: start: 20040805, end: 20041004
  2. VESANOID [Suspect]
     Route: 048
     Dates: start: 20041003
  3. PEGASYS [Concomitant]
     Indication: HEPATITIS C
     Route: 058
     Dates: start: 20040805, end: 20041004
  4. SELEN [Concomitant]
     Indication: HEPATITIS C
     Route: 048
     Dates: start: 20040805, end: 20041004

REACTIONS (6)
  - AGITATION [None]
  - HOT FLUSH [None]
  - INSOMNIA [None]
  - NAUSEA [None]
  - OVERDOSE [None]
  - SUICIDE ATTEMPT [None]
